FAERS Safety Report 19753975 (Version 2)
Quarter: 2021Q3

REPORT INFORMATION
  Report Type: Spontaneous
  Country: AU (occurrence: AU)
  Receive Date: 20210827
  Receipt Date: 20210905
  Transmission Date: 20211014
  Serious: Yes (Other)
  Sender: FDA-Public Use
  Company Number: AU-AMGEN-AUSSP2021130027

PATIENT
  Age: 69 Year
  Sex: Female

DRUGS (1)
  1. EVENITY [Suspect]
     Active Substance: ROMOSOZUMAB-AQQG
     Indication: OSTEOPOROSIS POSTMENOPAUSAL
     Dosage: 210 MILLIGRAM, QMO
     Route: 058
     Dates: end: 202108

REACTIONS (2)
  - Blood pressure inadequately controlled [Unknown]
  - Renal impairment [Unknown]

NARRATIVE: CASE EVENT DATE: 202108
